FAERS Safety Report 19762695 (Version 1)
Quarter: 2021Q3

REPORT INFORMATION
  Report Type: Report from Study
  Country: US (occurrence: US)
  Receive Date: 20210827
  Receipt Date: 20210827
  Transmission Date: 20211014
  Serious: Yes (Hospitalization)
  Sender: FDA-Public Use
  Company Number: US-BAXTER-2021BAX026592

PATIENT
  Age: 49 Year
  Sex: Male

DRUGS (14)
  1. PEGFILGRASTIM [Suspect]
     Active Substance: PEGFILGRASTIM
     Indication: PRODUCT USED FOR UNKNOWN INDICATION
     Dosage: REGIMEN A: SUBQ(OR FILGRASTIM 5?10 MCG/KG DAILY ) ON DAY 4 UNTIL RECOVERY OF GRANULOCYTE COUNT
     Route: 058
  2. METHOTREXATE SODIUM. [Suspect]
     Active Substance: METHOTREXATE SODIUM
     Dosage: REGIMEN B: CONTINUOUS INFUSION OVER 22 HOURS ON DAY 1
     Route: 065
  3. PEGFILGRASTIM [Suspect]
     Active Substance: PEGFILGRASTIM
     Dosage: REGIMEN B: SUBQ (OR FILGRASTIM 5?10 MCG/KG DAILY) ON DAY 4 UNTIL RECOVERY OF GRANULOCYTE COUNT
     Route: 058
  4. INOTUZUMAB OZOGAMICIN [Suspect]
     Active Substance: INOTUZUMAB OZOGAMICIN
     Indication: ACUTE LYMPHOCYTIC LEUKAEMIA
     Dosage: REGIMEN A: (CMC?544) (OVER 1 HOUR ON DAYS 2 AND 8 OF CYCLES 1 AND 3) (APPROXIMATE)
     Route: 042
     Dates: start: 20210418
  5. ARA?C [Suspect]
     Active Substance: CYTARABINE
     Indication: PRODUCT USED FOR UNKNOWN INDICATION
     Dosage: REGIMEN B: OVER 3 HOURS TWICE A DAY X 4 DOSES ON DAYS 2 AND 3
     Route: 042
  6. DEXAMETHASONE. [Suspect]
     Active Substance: DEXAMETHASONE
     Indication: PRODUCT USED FOR UNKNOWN INDICATION
     Dosage: REGIMEN A: DAILY FOR 4 DAYS ON DAYS 1?4 AND DAYS 11?14 (APPROXIMATE)
     Route: 042
  7. INOTUZUMAB OZOGAMICIN [Suspect]
     Active Substance: INOTUZUMAB OZOGAMICIN
     Dosage: REGIMEN B: (CMC?544) ON DAYS 2 AND 8 OF CYCLES 2 AND 4 (APPROXIMATE)
     Route: 042
  8. RITUXIMAB. [Suspect]
     Active Substance: RITUXIMAB
     Indication: PRODUCT USED FOR UNKNOWN INDICATION
     Dosage: REGIMEN A: ON DAY 2 AND DAY 8 OF CYCLES 1 AND 3
     Route: 042
  9. INOTUZUMAB OZOGAMICIN [Suspect]
     Active Substance: INOTUZUMAB OZOGAMICIN
     Dosage: LAST DOSE PRIOR TO EVENT
     Route: 042
     Dates: start: 20210714
  10. RITUXIMAB. [Suspect]
     Active Substance: RITUXIMAB
     Dosage: REGIMEN B: ON DAY 2 AND 8 OF CYCLES 2 AND 4
     Route: 042
  11. METHOTREXATE SODIUM. [Suspect]
     Active Substance: METHOTREXATE SODIUM
     Indication: PRODUCT USED FOR UNKNOWN INDICATION
     Dosage: REGIMEN B: OVER 2HRS ON DAY 1
     Route: 042
  12. CYCLOPHOSPHAMIDE FOR INJECTION, USP [Suspect]
     Active Substance: CYCLOPHOSPHAMIDE
     Indication: PRODUCT USED FOR UNKNOWN INDICATION
     Dosage: OVER 3 HOURS TWICE A DAY ON DAYS 1?3, REGIMEN A
     Route: 042
  13. MESNEX [Suspect]
     Active Substance: MESNA
     Indication: PRODUCT USED FOR UNKNOWN INDICATION
     Dosage: REGIMEN A: DAILY OVER 24 HOURS FOR 3 DAYS ON DAYS 1?3
     Route: 042
  14. VINCRISTINE SULFATE. [Suspect]
     Active Substance: VINCRISTINE SULFATE
     Indication: PRODUCT USED FOR UNKNOWN INDICATION
     Dosage: REGIMEN A: DAY 1 AND DAY 8 (APPROXIMATE)
     Route: 042

REACTIONS (1)
  - Febrile neutropenia [Recovered/Resolved]

NARRATIVE: CASE EVENT DATE: 20210717
